FAERS Safety Report 18608701 (Version 4)
Quarter: 2021Q1

REPORT INFORMATION
  Report Type: Spontaneous
  Country: NO (occurrence: NO)
  Receive Date: 20201213
  Receipt Date: 20210217
  Transmission Date: 20210419
  Serious: Yes (Hospitalization)
  Sender: FDA-Public Use
  Company Number: NO-NOVOPROD-772637

PATIENT
  Age: 23 Year
  Sex: Female

DRUGS (2)
  1. NORDITROPIN [Suspect]
     Active Substance: SOMATROPIN
     Indication: HYPOPITUITARISM
     Dosage: DOSE WAS 0.3MG(IN EVENING) TAKEN WITH 5 OR 10 MG PEN (UNKNOWN)
     Route: 058
     Dates: start: 2002
  2. NORDITROPIN [Suspect]
     Active Substance: SOMATROPIN
     Dosage: UNK
     Route: 058

REACTIONS (3)
  - Staphylococcal sepsis [Recovered/Resolved]
  - Transmission of an infectious agent via product [Recovered/Resolved]
  - Product contamination with body fluid [Unknown]

NARRATIVE: CASE EVENT DATE: 20200926
